FAERS Safety Report 20736617 (Version 1)
Quarter: 2022Q2

REPORT INFORMATION
  Report Type: Report from Study
  Country: US (occurrence: US)
  Receive Date: 20220421
  Receipt Date: 20220421
  Transmission Date: 20220720
  Serious: Yes (Other)
  Sender: FDA-Public Use
  Company Number: US-PFIZER INC-202200542252

PATIENT
  Age: 64 Year
  Sex: Female

DRUGS (1)
  1. IBRANCE [Suspect]
     Active Substance: PALBOCICLIB
     Dosage: UNK (2ND CYCLE OF IBRANCE)
     Dates: end: 20220404

REACTIONS (4)
  - Dyspnoea [Unknown]
  - Wheezing [Unknown]
  - Lung disorder [Unknown]
  - Respiratory disorder [Unknown]
